FAERS Safety Report 8199710-2 (Version None)
Quarter: 2012Q1

REPORT INFORMATION
  Report Type: 
  Country: None (occurrence: None)
  Receive Date: 20120311
  Receipt Date: 20120228
  Transmission Date: 20120608
  Serious: Yes (Death, Hospitalization, Other)
  Sender: FDA-Public Use
  Company Number: US-MYLANLABS-2012S1004928

PATIENT
  Sex: Female

DRUGS (22)
  1. TORSEMIDE [Concomitant]
  2. ISOSORBIDE DINITRATE [Concomitant]
  3. CELEXA [Concomitant]
  4. SIMVASTATIN [Concomitant]
  5. ZYRTEC [Concomitant]
  6. LANTUS [Concomitant]
  7. NOVOLOG [Concomitant]
  8. ALLEGRA [Concomitant]
  9. SPIRONOLACTONE [Concomitant]
  10. LEVOTHYROXINE SODIUM [Concomitant]
  11. POTASSIUM [Concomitant]
  12. COREG [Concomitant]
  13. ASPIRIN [Concomitant]
  14. CLONAZEPAM [Concomitant]
  15. COLACE [Concomitant]
  16. DEMADEX [Concomitant]
  17. ZAROXOLYN [Concomitant]
  18. OMEPRAZOLE [Concomitant]
  19. ZOLOFT [Concomitant]
  20. DIGOXIN [Suspect]
     Indication: PRODUCT USED FOR UNKNOWN INDICATION
     Route: 048
     Dates: start: 20020311, end: 20071220
  21. PREVACID [Concomitant]
  22. PROTONIX [Concomitant]

REACTIONS (40)
  - ASCITES [None]
  - ISCHAEMIA [None]
  - ASTHENIA [None]
  - LABORATORY TEST ABNORMAL [None]
  - COMPUTERISED TOMOGRAM ABNORMAL [None]
  - DEHYDRATION [None]
  - DEPRESSION [None]
  - INTERSTITIAL LUNG DISEASE [None]
  - CARDIAC FAILURE CONGESTIVE [None]
  - ALTERED STATE OF CONSCIOUSNESS [None]
  - BREATH SOUNDS ABNORMAL [None]
  - CARDIAC MURMUR [None]
  - LIVER DISORDER [None]
  - ORTHOPNOEA [None]
  - RALES [None]
  - CHEST X-RAY ABNORMAL [None]
  - DECREASED APPETITE [None]
  - HEART RATE IRREGULAR [None]
  - TOXICITY TO VARIOUS AGENTS [None]
  - PULMONARY OEDEMA [None]
  - VENTRICULAR EXTRASYSTOLES [None]
  - CHEST PAIN [None]
  - DISEASE RECURRENCE [None]
  - EJECTION FRACTION DECREASED [None]
  - PARACENTESIS [None]
  - DELIRIUM [None]
  - ELECTROCARDIOGRAM T WAVE ABNORMAL [None]
  - TREMOR [None]
  - HIP FRACTURE [None]
  - RENAL FAILURE CHRONIC [None]
  - ANXIETY DISORDER [None]
  - ECCHYMOSIS [None]
  - DEATH [None]
  - ATRIAL FIBRILLATION [None]
  - CARDIOMEGALY [None]
  - CONFUSIONAL STATE [None]
  - DYSPNOEA [None]
  - HYPONATRAEMIA [None]
  - OEDEMA PERIPHERAL [None]
  - SINUSITIS [None]
